FAERS Safety Report 17868528 (Version 1)
Quarter: 2020Q2

REPORT INFORMATION
  Report Type: Report from Study
  Country: DE (occurrence: DE)
  Receive Date: 20200606
  Receipt Date: 20200606
  Transmission Date: 20200714
  Serious: Yes (Hospitalization)
  Sender: FDA-Public Use
  Company Number: DE-TEVA-2020-DE-1243824

PATIENT
  Age: 20 Year
  Sex: Male
  Weight: 62 kg

DRUGS (8)
  1. LAMPRENE [Suspect]
     Active Substance: CLOFAZIMINE
     Indication: PRODUCT USED FOR UNKNOWN INDICATION
     Dosage: 100 MILLIGRAM DAILY;
     Route: 048
     Dates: start: 20161101, end: 20180924
  2. LINEZOLID. [Suspect]
     Active Substance: LINEZOLID
     Indication: PULMONARY TUBERCULOSIS
     Dosage: 300 MILLIGRAM DAILY;
     Route: 048
     Dates: start: 20160324, end: 20180928
  3. MOXIFLOXACIN. [Suspect]
     Active Substance: MOXIFLOXACIN
     Indication: PULMONARY TUBERCULOSIS
     Dosage: 400 MILLIGRAM DAILY;
     Route: 048
     Dates: start: 20160324, end: 20180928
  4. DELAMANID [Suspect]
     Active Substance: DELAMANID
     Indication: PULMONARY TUBERCULOSIS
     Dosage: 300 MILLIGRAM DAILY;
     Route: 048
     Dates: start: 20161026, end: 20170615
  5. CLOFAZIMINE [Suspect]
     Active Substance: CLOFAZIMINE
     Indication: PULMONARY TUBERCULOSIS
     Dosage: 100 MILLIGRAM DAILY;
     Route: 048
     Dates: start: 20161101, end: 20180928
  6. DELAMANID [Suspect]
     Active Substance: DELAMANID
     Dosage: 100 MILLIGRAM DAILY;
     Route: 048
     Dates: start: 20170616, end: 20180928
  7. TERIZIDONE [Suspect]
     Active Substance: TERIZIDONE
     Indication: PULMONARY TUBERCULOSIS
     Dosage: 750 MILLIGRAM DAILY;
     Route: 048
     Dates: start: 20160324, end: 20180928
  8. PANTOZOL [Concomitant]
     Active Substance: PANTOPRAZOLE SODIUM
     Indication: PROPHYLAXIS
     Dosage: 40 MILLIGRAM DAILY;
     Route: 048
     Dates: start: 20161025

REACTIONS (4)
  - Dry mouth [Not Recovered/Not Resolved]
  - Acne [Not Recovered/Not Resolved]
  - Alopecia [Recovered/Resolved]
  - Autonomic nervous system imbalance [Recovered/Resolved]

NARRATIVE: CASE EVENT DATE: 20161115
